FAERS Safety Report 6189610-1 (Version None)
Quarter: 2009Q2

REPORT INFORMATION
  Report Type: 
  Country: None (occurrence: None)
  Receive Date: 20090514
  Receipt Date: 20090430
  Transmission Date: 20091009
  Serious: Yes (Life-Threatening, Hospitalization)
  Sender: FDA-Public Use
  Company Number: FR-CELGENEUS-056-C5013-09042633

PATIENT
  Sex: Male
  Weight: 57 kg

DRUGS (2)
  1. CC-5013 [Suspect]
     Indication: T-CELL LYMPHOMA
     Route: 048
     Dates: start: 20090316
  2. CC-5013 [Suspect]
     Route: 048
     Dates: start: 20090415, end: 20090421

REACTIONS (2)
  - NEUTROPENIA [None]
  - THROMBOCYTOPENIA [None]
